FAERS Safety Report 24977111 (Version 1)
Quarter: 2025Q1

REPORT INFORMATION
  Report Type: Spontaneous
  Country: FR (occurrence: FR)
  Receive Date: 20250217
  Receipt Date: 20250217
  Transmission Date: 20250408
  Serious: Yes (Disabling, Other)
  Sender: MERCK KGAA
  Company Number: FR-Merck Healthcare KGaA-2025006782

PATIENT

DRUGS (1)
  1. LEVOTHYROXINE [Suspect]
     Active Substance: LEVOTHYROXINE
     Indication: Product used for unknown indication
     Dates: end: 201802

REACTIONS (4)
  - Bedridden [Recovered/Resolved]
  - Feeling abnormal [Recovered/Resolved]
  - Chest discomfort [Recovered/Resolved]
  - Orthostatic hypertension [Not Recovered/Not Resolved]
